FAERS Safety Report 5821208-4 (Version None)
Quarter: 2008Q3

REPORT INFORMATION
  Report Type: 
  Country: None (occurrence: None)
  Receive Date: 20080723
  Receipt Date: 20080723
  Transmission Date: 20090109
  Serious: Yes (Disabling)
  Sender: FDA-Public Use
  Company Number: None

PATIENT
  Sex: Female
  Weight: 54.4316 kg

DRUGS (2)
  1. CARBOPLATIN [Suspect]
     Indication: LYMPHOMA
     Dosage: 465MG DAY 1 IV
     Route: 042
     Dates: start: 20080116, end: 20080116
  2. IFOSFAMIDE [Suspect]
     Dosage: 2400MG  DAY 1  IV
     Route: 042
     Dates: start: 20080116, end: 20080116

REACTIONS (4)
  - HAEMORRHAGE [None]
  - METRORRHAGIA [None]
  - OCCUPATIONAL EXPOSURE TO TOXIC AGENT [None]
  - THERAPEUTIC PRODUCT CONTAMINATION [None]
